FAERS Safety Report 5940972-7 (Version None)
Quarter: 2008Q4

REPORT INFORMATION
  Report Type: 
  Country: None (occurrence: None)
  Receive Date: 20081104
  Receipt Date: 20081028
  Transmission Date: 20090506
  Serious: Yes (Other)
  Sender: FDA-Public Use
  Company Number: PHHY2008BR26677

PATIENT
  Age: 69 Year
  Sex: Female

DRUGS (2)
  1. FORASEQ [Suspect]
     Indication: DYSPNOEA
     Dosage: UNK
  2. FORASEQ [Suspect]
     Indication: BRONCHIAL DISORDER
     Dosage: 12400 UG

REACTIONS (4)
  - DYSPHONIA [None]
  - EMOTIONAL DISORDER [None]
  - PHARYNGEAL OEDEMA [None]
  - SLEEP APNOEA SYNDROME [None]
